FAERS Safety Report 25249796 (Version 1)
Quarter: 2025Q2

REPORT INFORMATION
  Report Type: Spontaneous
  Country: DE (occurrence: DE)
  Receive Date: 20250429
  Receipt Date: 20250429
  Transmission Date: 20250717
  Serious: Yes (Other)
  Sender: PANACEA BIOTEC PHARMA LIMITED
  Company Number: DE-PBT-010367

PATIENT
  Age: 51 Year

DRUGS (3)
  1. TACROLIMUS [Suspect]
     Active Substance: TACROLIMUS
     Indication: Prophylaxis against transplant rejection
     Route: 065
  2. MYCOPHENOLATE MOFETIL [Suspect]
     Active Substance: MYCOPHENOLATE MOFETIL
     Indication: Prophylaxis against transplant rejection
     Route: 065
  3. PREDNISOLONE [Suspect]
     Active Substance: PREDNISOLONE
     Indication: Prophylaxis against transplant rejection
     Route: 065

REACTIONS (11)
  - Respiratory tract infection [Unknown]
  - Parainfluenzae virus infection [Unknown]
  - Metapneumovirus infection [Unknown]
  - Acute kidney injury [Unknown]
  - Squamous cell carcinoma [Unknown]
  - Off label use [Unknown]
  - Eyelid tumour [Unknown]
  - Diabetic nephropathy [Unknown]
  - Hypertensive nephropathy [Unknown]
  - Transplant rejection [Unknown]
  - Developmental glaucoma [Unknown]
